FAERS Safety Report 6655409-2 (Version None)
Quarter: 2010Q1

REPORT INFORMATION
  Report Type: 
  Country: None (occurrence: None)
  Receive Date: 20100329
  Receipt Date: 20100224
  Transmission Date: 20100710
  Serious: No
  Sender: FDA-Public Use
  Company Number: US-BAYER-201012555BCC

PATIENT
  Age: 34 Year
  Sex: Female
  Weight: 73 kg

DRUGS (3)
  1. ALEVE [Suspect]
     Indication: DYSMENORRHOEA
     Dosage: TOTAL DAILY DOSE: 440 MG  UNIT DOSE: 220 MG
     Route: 048
     Dates: start: 20100224
  2. EXTRA STRENGTH PAIN AWAY [Concomitant]
     Indication: DYSMENORRHOEA
     Dosage: TOTAL DAILY DOSE: 2 DF  UNIT DOSE: 1 DF
     Route: 065
     Dates: start: 20100224
  3. IBUPROFEN [Concomitant]
     Indication: DYSMENORRHOEA
     Route: 065
     Dates: start: 20100224

REACTIONS (1)
  - SOMNOLENCE [None]
